FAERS Safety Report 25177296 (Version 1)
Quarter: 2025Q2

REPORT INFORMATION
  Report Type: Spontaneous
  Country: ID (occurrence: ID)
  Receive Date: 20250409
  Receipt Date: 20250409
  Transmission Date: 20250717
  Serious: Yes (Other)
  Sender: ACCORD
  Company Number: ID-MLMSERVICE-20250324-PI455922-00128-1

PATIENT
  Age: 32 Year
  Sex: Female

DRUGS (5)
  1. FLUOROURACIL [Suspect]
     Active Substance: FLUOROURACIL
     Indication: Invasive breast carcinoma
     Dates: start: 202309, end: 202312
  2. CYCLOPHOSPHAMIDE [Suspect]
     Active Substance: CYCLOPHOSPHAMIDE
     Indication: Invasive breast carcinoma
     Dates: start: 202309, end: 202312
  3. DOXORUBICIN [Suspect]
     Active Substance: DOXORUBICIN
     Indication: Invasive breast carcinoma
     Dates: start: 202309, end: 202312
  4. TAMOXIFEN [Concomitant]
     Active Substance: TAMOXIFEN
     Indication: Invasive breast carcinoma
     Route: 048
  5. GOSERELIN ACETATE [Concomitant]
     Active Substance: GOSERELIN ACETATE
     Indication: Invasive breast carcinoma
     Route: 058

REACTIONS (3)
  - Heart failure with reduced ejection fraction [Recovered/Resolved]
  - Cardiac ventricular thrombosis [Recovered/Resolved]
  - Left ventricular dysfunction [Recovered/Resolved]

NARRATIVE: CASE EVENT DATE: 20240501
